FAERS Safety Report 6225921-9 (Version None)
Quarter: 2009Q2

REPORT INFORMATION
  Report Type: 
  Country: None (occurrence: None)
  Receive Date: 20090612
  Receipt Date: 20090504
  Transmission Date: 20091009
  Serious: No
  Sender: FDA-Public Use
  Company Number: US-ABBOTT-09P-163-0571428-00

PATIENT
  Sex: Female
  Weight: 61.29 kg

DRUGS (19)
  1. HUMIRA [Suspect]
     Indication: CROHN'S DISEASE
     Route: 058
     Dates: start: 20081101
  2. HUMIRA [Suspect]
     Indication: RHEUMATOID ARTHRITIS
  3. CARAFATE [Concomitant]
     Indication: CROHN'S DISEASE
  4. BENTYL [Concomitant]
     Indication: ABDOMINAL PAIN UPPER
  5. ZOLOFT [Concomitant]
     Indication: DEPRESSION
  6. ZOLOFT [Concomitant]
     Indication: BIPOLAR DISORDER
  7. SEROQUEL [Concomitant]
     Indication: DEPRESSION
  8. SEROQUEL [Concomitant]
     Indication: BIPOLAR DISORDER
  9. TRAZODONE HCL [Concomitant]
     Indication: DEPRESSION
  10. TRAZODONE HCL [Concomitant]
     Indication: INSOMNIA
  11. VICODIN [Concomitant]
     Indication: PAIN
  12. SINGULAIR [Concomitant]
     Indication: HYPERSENSITIVITY
  13. COMBIVENT [Concomitant]
     Indication: ASTHMA
  14. COMBIVENT [Concomitant]
     Indication: CHRONIC OBSTRUCTIVE PULMONARY DISEASE
  15. SPIRIVA [Concomitant]
     Indication: CHRONIC OBSTRUCTIVE PULMONARY DISEASE
     Route: 055
  16. SPIRIVA [Concomitant]
     Indication: ASTHMA
  17. ALBUTEROL [Concomitant]
     Indication: CHRONIC OBSTRUCTIVE PULMONARY DISEASE
     Route: 055
  18. ALBUTEROL [Concomitant]
     Indication: ASTHMA
  19. PROTONIX [Concomitant]
     Indication: GASTROOESOPHAGEAL REFLUX DISEASE

REACTIONS (3)
  - INJECTION SITE PAIN [None]
  - RASH [None]
  - WEIGHT INCREASED [None]
